FAERS Safety Report 11299190 (Version 2)
Quarter: 2015Q4

REPORT INFORMATION
  Report Type: Spontaneous
  Country: US (occurrence: US)
  Receive Date: 20150722
  Receipt Date: 20151110
  Transmission Date: 20160304
  Serious: No
  Sender: FDA-Public Use
  Company Number: US-ELI_LILLY_AND_COMPANY-US201207003590

PATIENT
  Age: 56 Year
  Sex: Female

DRUGS (2)
  1. EVISTA [Suspect]
     Active Substance: RALOXIFENE HYDROCHLORIDE
     Indication: OSTEOPOROSIS
     Dosage: UNK UNK, QD
  2. FORTEO [Suspect]
     Active Substance: TERIPARATIDE
     Indication: OSTEOPOROSIS
     Dosage: 20 UG, QD
     Dates: start: 201207

REACTIONS (6)
  - Pruritus [Not Recovered/Not Resolved]
  - Frustration [Unknown]
  - Sleep disorder due to a general medical condition [Unknown]
  - Bone density abnormal [Unknown]
  - Anger [Unknown]
  - Urticaria [Unknown]

NARRATIVE: CASE EVENT DATE: 20120705
